FAERS Safety Report 20383033 (Version 1)
Quarter: 2022Q1

REPORT INFORMATION
  Report Type: Spontaneous
  Country: US (occurrence: US)
  Receive Date: 20220127
  Receipt Date: 20220127
  Transmission Date: 20220423
  Serious: Yes (Other)
  Sender: FDA-Public Use
  Company Number: US-SANOFI-00941409

PATIENT
  Age: 76 Year
  Sex: Female

DRUGS (3)
  1. MULTAQ [Suspect]
     Active Substance: DRONEDARONE
     Dosage: 400 MG, BID
     Dates: start: 2009
  2. CELEBREX [Concomitant]
     Active Substance: CELECOXIB
  3. ASPIRIN [Concomitant]
     Active Substance: ASPIRIN
     Dosage: 325 MG
     Dates: end: 20210119

REACTIONS (4)
  - Atrial fibrillation [Recovered/Resolved]
  - Heart rate irregular [Unknown]
  - Unevaluable event [Unknown]
  - Bradycardia [Unknown]

NARRATIVE: CASE EVENT DATE: 20220118
